FAERS Safety Report 4682542-7 (Version None)
Quarter: 2005Q2

REPORT INFORMATION
  Report Type: 
  Country: None (occurrence: None)
  Receive Date: 20050606
  Receipt Date: 20050310
  Transmission Date: 20051028
  Serious: Yes (Hospitalization)
  Sender: FDA-Public Use
  Company Number: US-MERCK-0503USA01931

PATIENT
  Age: 53 Year
  Sex: Male
  Weight: 91 kg

DRUGS (10)
  1. VIOXX [Suspect]
     Indication: MONARTHRITIS
     Route: 048
     Dates: start: 20020701, end: 20040901
  2. NEURONTIN [Concomitant]
     Route: 065
  3. ZYPREXA [Concomitant]
     Indication: PSYCHOTIC DISORDER
     Route: 065
  4. CELEXA [Concomitant]
     Route: 065
  5. AMBIEN [Concomitant]
     Route: 065
  6. NORVASC [Concomitant]
     Indication: HYPERTENSION
     Route: 065
  7. SEREVENT [Concomitant]
     Route: 065
  8. ATROVENT [Concomitant]
     Route: 065
  9. TYLENOL W/ CODEINE NO. 4 [Concomitant]
     Indication: MONARTHRITIS
     Route: 065
  10. TYLENOL W/ CODEINE NO. 4 [Concomitant]
     Indication: PAIN
     Route: 065

REACTIONS (7)
  - DEEP VEIN THROMBOSIS [None]
  - EMOTIONAL DISTRESS [None]
  - MONARTHRITIS [None]
  - PAIN [None]
  - PERIODONTITIS [None]
  - PULMONARY EMBOLISM [None]
  - TENDON RUPTURE [None]
